FAERS Safety Report 9356967 (Version 1)
Quarter: 2013Q2

REPORT INFORMATION
  Report Type: Spontaneous
  Country: FR (occurrence: FR)
  Receive Date: 20130620
  Receipt Date: 20130620
  Transmission Date: 20140414
  Serious: Yes (Hospitalization)
  Sender: FDA-Public Use
  Company Number: FR-ROCHE-1237159

PATIENT
  Age: 44 Year
  Sex: Male

DRUGS (4)
  1. ROCEPHINE [Suspect]
     Indication: PRODUCT USED FOR UNKNOWN INDICATION
     Route: 065
     Dates: start: 20130204, end: 20130213
  2. ROVAMYCINE [Suspect]
     Indication: PRODUCT USED FOR UNKNOWN INDICATION
     Route: 065
     Dates: start: 20130204, end: 20130208
  3. CIFLOX (FRANCE) [Concomitant]
     Route: 065
     Dates: start: 20130208, end: 20130210
  4. DOXYCYCLINE [Concomitant]

REACTIONS (3)
  - Rash [Recovered/Resolved]
  - Cell death [Recovered/Resolved]
  - Pyrexia [Recovered/Resolved]
